FAERS Safety Report 9597467 (Version 1)
Quarter: 2013Q4

REPORT INFORMATION
  Report Type: Spontaneous
  Country: US (occurrence: US)
  Receive Date: 20131004
  Receipt Date: 20131004
  Transmission Date: 20140711
  Serious: No
  Sender: FDA-Public Use
  Company Number: US-AMGEN-USASP2013019616

PATIENT
  Age: 57 Year
  Sex: Female
  Weight: 75.28 kg

DRUGS (3)
  1. ENBREL [Suspect]
     Indication: PRODUCT USED FOR UNKNOWN INDICATION
     Dosage: 50 MG, QWK
     Route: 058
  2. CALTRATE                           /00944201/ [Concomitant]
     Dosage: 600
  3. FISH OIL [Concomitant]

REACTIONS (3)
  - Injection site pain [Unknown]
  - Staphylococcal infection [Unknown]
  - Psoriasis [Unknown]
